FAERS Safety Report 13261549 (Version 1)
Quarter: 2017Q1

REPORT INFORMATION
  Report Type: Spontaneous
  Country: DE (occurrence: DE)
  Receive Date: 20170222
  Receipt Date: 20170222
  Transmission Date: 20170428
  Serious: Yes (Hospitalization, Other)
  Sender: FDA-Public Use
  Company Number: DE-PFIZER INC-2017071451

PATIENT
  Sex: Female
  Weight: 2.63 kg

DRUGS (4)
  1. VENLAFAXINE HCL [Suspect]
     Active Substance: VENLAFAXINE HYDROCHLORIDE
     Indication: DEPRESSION
     Dosage: 150 MG, 1X/DAY 1.TRIMESTER (0.-41. GEST WEEK)
     Route: 064
     Dates: start: 20160101, end: 20161014
  2. VENLAFAXINE HCL [Suspect]
     Active Substance: VENLAFAXINE HYDROCHLORIDE
     Dosage: 150 MG, 1X/DAY
     Route: 063
     Dates: start: 20161015
  3. MINPROSTIN E2 [Concomitant]
     Indication: LABOUR INDUCTION
     Dosage: 3 TRIMESTER (41. GESTATIONAL WEEK)
     Route: 064
     Dates: start: 20161014, end: 20161014
  4. QUETIAPINE. [Suspect]
     Active Substance: QUETIAPINE
     Indication: DEPRESSION
     Dosage: 25 MG, 1X/DAY 1 TRIMESTER (0.-41. GESTATIONAL WEEK)
     Route: 064
     Dates: start: 20160101, end: 20161014

REACTIONS (5)
  - Exposure during breast feeding [Unknown]
  - Exposure during pregnancy [Unknown]
  - Infection [Unknown]
  - Hypoglycaemia neonatal [Recovered/Resolved]
  - Small for dates baby [Recovering/Resolving]

NARRATIVE: CASE EVENT DATE: 2016
